FAERS Safety Report 17815151 (Version 1)
Quarter: 2020Q2

REPORT INFORMATION
  Report Type: Report from Study
  Country: None (occurrence: US)
  Receive Date: 20200522
  Receipt Date: 20200522
  Transmission Date: 20200714
  Serious: No
  Sender: FDA-Public Use
  Company Number: US-BIOVITRUM-2019US4574

PATIENT
  Sex: Female

DRUGS (1)
  1. KINERET [Suspect]
     Active Substance: ANAKINRA
     Indication: POLYARTHRITIS
     Route: 058
     Dates: start: 20190409

REACTIONS (12)
  - Product dose omission [Unknown]
  - Injection site pain [Unknown]
  - Off label use [Unknown]
  - Peripheral swelling [Recovering/Resolving]
  - Needle issue [Unknown]
  - Musculoskeletal pain [Unknown]
  - Hypoaesthesia [Recovering/Resolving]
  - Cystitis [Unknown]
  - Vitamin D deficiency [Unknown]
  - Arthralgia [Unknown]
  - Mobility decreased [Unknown]
  - Dry eye [Unknown]
